FAERS Safety Report 10971515 (Version 4)
Quarter: 2015Q2

REPORT INFORMATION
  Report Type: Spontaneous
  Country: CA (occurrence: CA)
  Receive Date: 20150331
  Receipt Date: 20150611
  Transmission Date: 20150821
  Serious: Yes (Other)
  Sender: FDA-Public Use
  Company Number: CA-GLAXOSMITHKLINE-CA2015GSK039895

PATIENT
  Sex: Female
  Weight: 69 kg

DRUGS (2)
  1. PLAQUENIL [Concomitant]
     Active Substance: HYDROXYCHLOROQUINE SULFATE
     Indication: PRODUCT USED FOR UNKNOWN INDICATION
     Dosage: 200 MG, UNK
  2. BENLYSTA [Suspect]
     Active Substance: BELIMUMAB
     Indication: SYSTEMIC LUPUS ERYTHEMATOSUS
     Dosage: 960 MG, UNK
     Dates: start: 20140311

REACTIONS (7)
  - Arthralgia [Unknown]
  - Musculoskeletal stiffness [Unknown]
  - Rash [Unknown]
  - Erythema [Unknown]
  - Urticaria [Unknown]
  - Rash pruritic [Recovered/Resolved]
  - Systemic lupus erythematosus [Unknown]
